FAERS Safety Report 26147970 (Version 1)
Quarter: 2025Q4

REPORT INFORMATION
  Report Type: Report from Study
  Country: EU (occurrence: EU)
  Receive Date: 20251212
  Receipt Date: 20251212
  Transmission Date: 20260117
  Serious: Yes (Other)
  Sender: ABBVIE
  Company Number: EU-ABBVIE-6578360

PATIENT
  Age: 70 Year
  Sex: Male

DRUGS (1)
  1. FOSCARBIDOPA\FOSLEVODOPA [Suspect]
     Active Substance: FOSCARBIDOPA\FOSLEVODOPA
     Indication: Parkinson^s disease
     Dosage: DAILY DOSE: 3,100.8MG, CRL: 0.5ML/H, CRB: 0.52ML/H, CRH: 0.54ML/H, ED: 0.3ML, LD: 0.1ML
     Route: 058
     Dates: start: 20240617

REACTIONS (2)
  - Surgery [Unknown]
  - Incisional hernia [Not Recovered/Not Resolved]

NARRATIVE: CASE EVENT DATE: 20250901
